FAERS Safety Report 7299799-9 (Version None)
Quarter: 2011Q1

REPORT INFORMATION
  Report Type: 
  Country: None (occurrence: None)
  Receive Date: 20110217
  Receipt Date: 20110125
  Transmission Date: 20110831
  Serious: No
  Sender: FDA-Public Use
  Company Number: US-B.I. PHARMACEUTICALS,INC./RIDGEFIELD-2011-BP-02567BP

PATIENT
  Sex: Male

DRUGS (6)
  1. PRADAXA [Suspect]
     Indication: ATRIAL FIBRILLATION
     Dosage: 300 MG
     Route: 048
     Dates: start: 20110104
  2. LORTAB [Concomitant]
     Indication: BACK PAIN
  3. TOPROL-XL [Concomitant]
     Indication: HYPERTENSION
  4. VITAMIN D [Concomitant]
     Indication: PROPHYLAXIS
  5. FOSINOPRIL HCTZ [Concomitant]
     Indication: HYPERTENSION
  6. AVODART [Concomitant]
     Indication: PROSTATOMEGALY

REACTIONS (3)
  - DYSPEPSIA [None]
  - PARAESTHESIA [None]
  - DRY MOUTH [None]
